FAERS Safety Report 6667878-2 (Version None)
Quarter: 2010Q2

REPORT INFORMATION
  Report Type: 
  Country: None (occurrence: None)
  Receive Date: 20100405
  Receipt Date: 20100402
  Transmission Date: 20101027
  Serious: Yes (Death, Hospitalization)
  Sender: FDA-Public Use
  Company Number: JP-B.I. PHARMACEUTICALS,INC./RIDGEFIELD-2010-BP-02673NB

PATIENT
  Sex: Male
  Weight: 101 kg

DRUGS (3)
  1. MICARDIS [Suspect]
     Indication: HYPERTENSION
     Dosage: 40 MG
     Route: 048
     Dates: start: 20060920
  2. OMEPRAZOLE [Concomitant]
     Indication: REFLUX OESOPHAGITIS
     Dosage: 10 MG
     Route: 048
     Dates: start: 20081015, end: 20090701
  3. EPADEL S [Concomitant]
     Indication: BLOOD CREATINE PHOSPHOKINASE INCREASED
     Dosage: 600 MG
     Route: 048
     Dates: start: 20071003, end: 20090701

REACTIONS (4)
  - ARTHRALGIA [None]
  - DEATH [None]
  - ROAD TRAFFIC ACCIDENT [None]
  - WEIGHT LOSS POOR [None]
